FAERS Safety Report 9284091 (Version 2)
Quarter: 2013Q4

REPORT INFORMATION
  Report Type: Spontaneous
  Country: US (occurrence: US)
  Receive Date: 20130510
  Receipt Date: 20131011
  Transmission Date: 20140711
  Serious: Yes (Death, Hospitalization)
  Sender: FDA-Public Use
  Company Number: US-B.I. PHARMACEUTICALS,INC./RIDGEFIELD-2013-BI-13176BP

PATIENT
  Age: 82 Year
  Sex: Male

DRUGS (10)
  1. PRADAXA [Suspect]
     Indication: ANTICOAGULANT THERAPY
     Dosage: 300 MG
     Route: 048
     Dates: start: 20120430, end: 20121020
  2. PRADAXA [Suspect]
     Indication: ATRIAL FIBRILLATION
  3. ADVAIR [Concomitant]
  4. IRON [Concomitant]
  5. PRILOSEC [Concomitant]
  6. CARVEDILOL [Concomitant]
  7. DOXAZOSIN [Concomitant]
  8. FUROSEMIDE [Concomitant]
  9. MAGNESIUM OXIDE [Concomitant]
  10. POTASSIUM CHLORIDE [Concomitant]

REACTIONS (3)
  - Gastrointestinal haemorrhage [Fatal]
  - Anaemia [Unknown]
  - Renal failure acute [Unknown]
